FAERS Safety Report 14980591 (Version 1)
Quarter: 2018Q2

REPORT INFORMATION
  Report Type: Report from Study
  Country: BR (occurrence: BR)
  Receive Date: 20180606
  Receipt Date: 20180606
  Transmission Date: 20180711
  Serious: Yes (Hospitalization, Other)
  Sender: FDA-Public Use
  Company Number: PHHY2016BR167807

PATIENT
  Sex: Female
  Weight: 60 kg

DRUGS (5)
  1. EXJADE [Suspect]
     Active Substance: DEFERASIROX
     Indication: SICKLE CELL ANAEMIA WITH CRISIS
     Dosage: 2 DF, QD
     Route: 048
     Dates: start: 2004
  2. FOLIC ACID. [Concomitant]
     Active Substance: FOLIC ACID
     Dosage: 1 DF, QD
     Route: 048
  3. TYLEX [Concomitant]
     Active Substance: ACETAMINOPHEN\CODEINE PHOSPHATE
     Indication: PAIN
     Route: 065
  4. HYDREA [Concomitant]
     Active Substance: HYDROXYUREA
     Indication: SICKLE CELL ANAEMIA
     Dosage: 4 DF, QD
     Route: 048
     Dates: start: 2003
  5. HYDROXYUREA. [Concomitant]
     Active Substance: HYDROXYUREA
     Indication: SICKLE CELL ANAEMIA
     Dosage: 4 DF, QD
     Route: 048

REACTIONS (17)
  - Back pain [Not Recovered/Not Resolved]
  - Angina pectoris [Not Recovered/Not Resolved]
  - Sickle cell anaemia with crisis [Unknown]
  - Malaise [Not Recovered/Not Resolved]
  - Platelet count increased [Recovering/Resolving]
  - Syncope [Not Recovered/Not Resolved]
  - Swelling [Recovered/Resolved]
  - Abdominal discomfort [Unknown]
  - Toothache [Not Recovered/Not Resolved]
  - Spinal pain [Not Recovered/Not Resolved]
  - Nausea [Unknown]
  - Spinal disorder [Not Recovered/Not Resolved]
  - Pain [Not Recovered/Not Resolved]
  - Osteitis [Not Recovered/Not Resolved]
  - Wrong technique in product usage process [Not Recovered/Not Resolved]
  - Blood iron increased [Not Recovered/Not Resolved]
  - Headache [Not Recovered/Not Resolved]
